FAERS Safety Report 5697694-X (Version None)
Quarter: 2008Q2

REPORT INFORMATION
  Report Type: 
  Country: None (occurrence: None)
  Receive Date: 20080408
  Receipt Date: 20080403
  Transmission Date: 20081010
  Serious: Yes (Death, Life-Threatening, Hospitalization, Other)
  Sender: FDA-Public Use
  Company Number: A0721669A

PATIENT
  Age: 64 Year
  Sex: Female
  Weight: 68 kg

DRUGS (5)
  1. SERETIDE [Suspect]
     Indication: PULMONARY FIBROSIS
     Route: 055
     Dates: start: 20071201, end: 20080318
  2. SPIRIVA [Concomitant]
     Dates: start: 20070301
  3. FLUIMUCIL [Concomitant]
     Dates: start: 20080301
  4. DEFLAZACORT [Concomitant]
  5. OXYGEN [Concomitant]
     Dates: start: 20080301

REACTIONS (2)
  - DEATH [None]
  - OFF LABEL USE [None]
